FAERS Safety Report 11309993 (Version 4)
Quarter: 2015Q3

REPORT INFORMATION
  Report Type: Spontaneous
  Country: JP (occurrence: JP)
  Receive Date: 20150724
  Receipt Date: 20150914
  Transmission Date: 20151125
  Serious: Yes (Hospitalization, Other)
  Sender: FDA-Public Use
  Company Number: JP-PFIZER INC-2015243369

PATIENT
  Age: 80 Year
  Sex: Male
  Weight: 52 kg

DRUGS (12)
  1. ALLOPURINOL. [Concomitant]
     Active Substance: ALLOPURINOL
  2. INLYTA [Suspect]
     Active Substance: AXITINIB
     Indication: RENAL CELL CARCINOMA
     Dosage: 8 MG, DAILY
     Route: 048
     Dates: start: 20140724, end: 20150616
  3. LASIX [Concomitant]
     Active Substance: FUROSEMIDE
  4. FLIVAS [Concomitant]
     Active Substance: NAFTOPIDIL
  5. PHENLASE [Concomitant]
  6. AMLODIPINE [Concomitant]
     Active Substance: AMLODIPINE BESYLATE
  7. LANSOPRAZOLE OD [Concomitant]
     Active Substance: LANSOPRAZOLE
  8. CLARITIN [Concomitant]
     Active Substance: LORATADINE
  9. SENNOSIDE [Concomitant]
     Active Substance: SENNOSIDES
  10. AVOLVE [Concomitant]
     Active Substance: DUTASTERIDE
  11. REGPARA [Concomitant]
     Active Substance: CINACALCET HYDROCHLORIDE
  12. HERBAL NOS [Concomitant]
     Active Substance: HERBALS

REACTIONS (6)
  - Atrial fibrillation [Unknown]
  - Gastrointestinal haemorrhage [Recovered/Resolved]
  - Gastric ulcer [Unknown]
  - Hypothyroidism [Unknown]
  - Faeces discoloured [Recovered/Resolved]
  - Cerebral infarction [Recovered/Resolved with Sequelae]

NARRATIVE: CASE EVENT DATE: 20140911
